FAERS Safety Report 5808084-0 (Version None)
Quarter: 2008Q3

REPORT INFORMATION
  Report Type: 
  Country: None (occurrence: None)
  Receive Date: 20080708
  Receipt Date: 20080627
  Transmission Date: 20090109
  Serious: Yes (Death, Hospitalization)
  Sender: FDA-Public Use
  Company Number: DSJ-2008-06547

PATIENT
  Age: 80 Year
  Sex: Male
  Weight: 72 kg

DRUGS (2)
  1. OLMESARTAN MEDOXOMIL [Suspect]
     Indication: ESSENTIAL HYPERTENSION
     Dosage: 10 MG (10 MG, 1 IN 1 D), PER ORAL
     Route: 048
     Dates: start: 20061205, end: 20070116
  2. EPADEL (ETHYL ICOSAPENTATE) (ETHYL ICOSAPENTATE) [Concomitant]

REACTIONS (3)
  - PALPITATIONS [None]
  - PANCREATIC CARCINOMA [None]
  - PLEURAL EFFUSION [None]
